FAERS Safety Report 5470352-2 (Version None)
Quarter: 2007Q3

REPORT INFORMATION
  Report Type: 
  Country: None (occurrence: None)
  Receive Date: 20070925
  Receipt Date: 20070915
  Transmission Date: 20080115
  Serious: Yes (Hospitalization)
  Sender: FDA-Public Use
  Company Number: 2007-02876

PATIENT
  Age: 61 Year
  Sex: Male
  Weight: 75 kg

DRUGS (4)
  1. VELCADE [Suspect]
     Indication: MULTIPLE MYELOMA
  2. ZOVIRAX [Suspect]
     Indication: DRUG USE FOR UNKNOWN INDICATION
     Dosage: 400.00 MG, ORAL
     Route: 048
     Dates: start: 20070823, end: 20070827
  3. BACTRIM [Suspect]
     Indication: DRUG USE FOR UNKNOWN INDICATION
     Dosage: 100 DF, ORAL
     Route: 048
     Dates: start: 20070823, end: 20070827
  4. ENOXAPARIN SODIUM [Suspect]
     Indication: DRUG USE FOR UNKNOWN INDICATION
     Dosage: 4000.00 UL, SUBCUTANEOUS
     Route: 058
     Dates: start: 20070823

REACTIONS (2)
  - ATRIAL FIBRILLATION [None]
  - PYREXIA [None]
